FAERS Safety Report 14802954 (Version 5)
Quarter: 2018Q2

REPORT INFORMATION
  Report Type: Spontaneous
  Country: US (occurrence: US)
  Receive Date: 20180424
  Receipt Date: 20180612
  Transmission Date: 20180711
  Serious: No
  Sender: FDA-Public Use
  Company Number: US-009507513-1804USA004469

PATIENT
  Sex: Female
  Weight: 108.39 kg

DRUGS (1)
  1. NEXPLANON [Suspect]
     Active Substance: ETONOGESTREL
     Indication: CONTRACEPTION
     Dosage: 1 ROD
     Route: 059
     Dates: start: 20170807

REACTIONS (2)
  - Complication associated with device [Not Recovered/Not Resolved]
  - Implant site discolouration [Recovered/Resolved]

NARRATIVE: CASE EVENT DATE: 20180405
